FAERS Safety Report 20649164 (Version 1)
Quarter: 2022Q1

REPORT INFORMATION
  Report Type: Spontaneous
  Country: US (occurrence: None)
  Receive Date: 20220329
  Receipt Date: 20220329
  Transmission Date: 20220423
  Serious: Yes (Hospitalization)
  Sender: FDA-Public Use
  Company Number: None

PATIENT
  Age: 23 Year
  Sex: Male
  Weight: 87.8 kg

DRUGS (6)
  1. METHOTREXATE [Suspect]
     Active Substance: METHOTREXATE
     Dates: end: 20220323
  2. MERCAPTOPURINE [Suspect]
     Active Substance: MERCAPTOPURINE
     Dates: end: 20220322
  3. ONCASPAR [Suspect]
     Active Substance: PEGASPARGASE
     Dates: end: 20220323
  4. VINCRISTINE SULFATE [Suspect]
     Active Substance: VINCRISTINE SULFATE
     Dates: end: 20220323
  5. CYCLOPHOSPHAMIDE [Suspect]
     Active Substance: CYCLOPHOSPHAMIDE
     Dates: end: 20220309
  6. CYTARABINE [Suspect]
     Active Substance: CYTARABINE
     Dates: end: 20220319

REACTIONS (7)
  - Salivary hypersecretion [None]
  - Aphasia [None]
  - Aphasia [None]
  - Toxicity to various agents [None]
  - Thrombotic stroke [None]
  - Haemorrhagic stroke [None]
  - Posterior reversible encephalopathy syndrome [None]

NARRATIVE: CASE EVENT DATE: 20220323
